FAERS Safety Report 21432505 (Version 1)
Quarter: 2022Q4

REPORT INFORMATION
  Report Type: Spontaneous
  Country: US (occurrence: US)
  Receive Date: 20221010
  Receipt Date: 20221010
  Transmission Date: 20230112
  Serious: Yes (Hospitalization, Other)
  Sender: FDA-Public Use
  Company Number: US-STRIDES ARCOLAB LIMITED-2022SP012927

PATIENT
  Age: 8 Year
  Sex: Male

DRUGS (26)
  1. CARBOPLATIN [Suspect]
     Active Substance: CARBOPLATIN
     Indication: Neoplasm
     Dosage: UNK, CYCLICAL,ICE REGIMEN; ONE CYCLE
     Route: 065
  2. CARBOPLATIN [Suspect]
     Active Substance: CARBOPLATIN
     Indication: Spinal cord neoplasm
     Dosage: UNK,CYCLICAL,ONE CYCLE OF CONSOLIDATION THERAPY WITH HIGH DOSE CARBOPLATIN
     Route: 065
  3. CISPLATIN [Suspect]
     Active Substance: CISPLATIN
     Indication: Neoplasm
     Dosage: UNK, CYCLICAL, SECOND CYCLE OF INDUCTION THERAPY
     Route: 065
  4. CISPLATIN [Suspect]
     Active Substance: CISPLATIN
     Indication: Spinal cord neoplasm
     Dosage: UNK, CYCLICAL, THIRD CYCLE OF INDUCTION THERAPY
     Route: 065
  5. METHOTREXATE [Suspect]
     Active Substance: METHOTREXATE
     Indication: Neoplasm
     Dosage: UNK, CYCLICAL, HIGH-DOSE; SECOND CYCLE OF INDUCTION THERAPY
     Route: 065
  6. METHOTREXATE [Suspect]
     Active Substance: METHOTREXATE
     Indication: Spinal cord neoplasm
     Dosage: UNK, CYCLICAL, THIRD CYCLE OF INDUCTION THERAPY
     Route: 065
  7. ETOPOSIDE [Suspect]
     Active Substance: ETOPOSIDE
     Indication: Neoplasm
     Dosage: UNK, CYCLICAL,ICE REGIMEN; ONE CYCLE
     Route: 065
  8. ETOPOSIDE [Suspect]
     Active Substance: ETOPOSIDE
     Indication: Spinal cord neoplasm
     Dosage: UNK, CYCLICAL,SECOND CYCLE OF INDUCTION THERAPY
     Route: 065
  9. ETOPOSIDE [Suspect]
     Active Substance: ETOPOSIDE
     Dosage: UNK, CYCLICAL, THIRD CYCLE OF INDUCTION THERAPY
     Route: 065
  10. ETOPOSIDE [Suspect]
     Active Substance: ETOPOSIDE
     Dosage: UNK, CYCLICAL,ONE CYCLE OF CONSOLIDATION THERAPY
     Route: 065
  11. ETOPOSIDE [Suspect]
     Active Substance: ETOPOSIDE
     Dosage: UNK,METRONOMIC CHEMOTHERAPY
     Route: 065
  12. IFOSFAMIDE [Suspect]
     Active Substance: IFOSFAMIDE
     Indication: Neoplasm
     Dosage: UNK, CYCLICAL, ICE REGIMEN; ONE CYCLE
     Route: 065
  13. IFOSFAMIDE [Suspect]
     Active Substance: IFOSFAMIDE
     Indication: Spinal cord neoplasm
  14. VINCRISTINE [Suspect]
     Active Substance: VINCRISTINE
     Indication: Neoplasm
     Dosage: UNK, CYCLICAL, SECOND CYCLE OF INDUCTION THERAPY
     Route: 065
  15. VINCRISTINE [Suspect]
     Active Substance: VINCRISTINE
     Indication: Spinal cord neoplasm
     Dosage: UNK, CYCLICAL, THIRD CYCLE OF INDUCTION THERAPY
     Route: 065
  16. MANNITOL [Suspect]
     Active Substance: MANNITOL
     Indication: Neoplasm
     Dosage: UNK, CYCLICAL,SECOND CYCLE INDUCTION THERAPY
     Route: 065
  17. MANNITOL [Suspect]
     Active Substance: MANNITOL
     Indication: Spinal cord neoplasm
     Dosage: UNK, CYCLICAL, THIRD CYCLE OF INDUCTION THERAPY
     Route: 065
  18. CYCLOPHOSPHAMIDE [Suspect]
     Active Substance: CYCLOPHOSPHAMIDE
     Indication: Neoplasm
     Dosage: UNK, CYCLICAL,SECOND CYCLE OF INDUCTION THERAPY
     Route: 065
  19. CYCLOPHOSPHAMIDE [Suspect]
     Active Substance: CYCLOPHOSPHAMIDE
     Indication: Spinal cord neoplasm
     Dosage: UNK, CYCLICAL, THIRD CYCLE OF INDUCTION THERAPY
     Route: 065
  20. CYCLOPHOSPHAMIDE [Suspect]
     Active Substance: CYCLOPHOSPHAMIDE
     Dosage: UNK,METRONOMIC CHEMOTHERAPY
     Route: 065
  21. MESNA [Suspect]
     Active Substance: MESNA
     Indication: Neoplasm
     Dosage: UNK, CYCLICAL,SECOND CYCLE OF INDUCTION THERAPY
     Route: 065
  22. MESNA [Suspect]
     Active Substance: MESNA
     Indication: Spinal cord neoplasm
     Dosage: UNK, CYCLICAL, THIRD CYCLE OF INDUCTION THERAPY
     Route: 065
  23. LEUCOVORIN [Suspect]
     Active Substance: LEUCOVORIN
     Indication: Neoplasm
     Dosage: UNK, CYCLICAL, SECOND CYCLE OF INDUCTION THERAPY
     Route: 065
  24. LEUCOVORIN [Suspect]
     Active Substance: LEUCOVORIN
     Indication: Spinal cord neoplasm
     Dosage: UNK, CYCLICAL, THIRD CYCLE OF INDUCTION THERAPY
     Route: 065
  25. THIOTEPA [Suspect]
     Active Substance: THIOTEPA
     Indication: Neoplasm
     Dosage: UNK, CYCLICAL, ONE CYCLE OF CONSOLIDATION THERAPY
     Route: 065
  26. THIOTEPA [Suspect]
     Active Substance: THIOTEPA
     Indication: Spinal cord neoplasm

REACTIONS (12)
  - Eating disorder [Recovered/Resolved]
  - Colitis [Recovered/Resolved]
  - Engraftment syndrome [Unknown]
  - Dehydration [Unknown]
  - Enterobacter infection [Recovered/Resolved]
  - Klebsiella infection [Recovered/Resolved]
  - Bacteraemia [Recovered/Resolved]
  - Clostridium difficile colitis [Unknown]
  - Electrolyte imbalance [Unknown]
  - Mucosal inflammation [Recovered/Resolved]
  - Nausea [Recovered/Resolved]
  - Off label use [Unknown]
